FAERS Safety Report 6295184-7 (Version None)
Quarter: 2009Q3

REPORT INFORMATION
  Report Type: 
  Country: None (occurrence: None)
  Receive Date: 20090729
  Receipt Date: 20090720
  Transmission Date: 20100115
  Serious: Yes (Other)
  Sender: FDA-Public Use
  Company Number: MOZO-1000222

PATIENT
  Age: 36 Year
  Sex: Female
  Weight: 58 kg

DRUGS (1)
  1. MOZOBIL [Suspect]
     Indication: LYMPHOMA
     Dosage: 240 MCG/KG, QD, SUBCUTANEOUS
     Route: 058
     Dates: start: 20090424, end: 20090426

REACTIONS (2)
  - DRUG INEFFECTIVE [None]
  - PLATELET COUNT DECREASED [None]
